FAERS Safety Report 8586178-7 (Version None)
Quarter: 2012Q3

REPORT INFORMATION
  Report Type: 
  Country: None (occurrence: None)
  Receive Date: 20120810
  Receipt Date: 20120802
  Transmission Date: 20120928
  Serious: Yes (Other)
  Sender: FDA-Public Use
  Company Number: PL-GLAXOSMITHKLINE-B0814114A

PATIENT
  Age: 50 Year
  Sex: Female

DRUGS (5)
  1. LAPATINIB [Suspect]
     Indication: BREAST CANCER
     Route: 065
     Dates: start: 20110801
  2. DOCETAXEL [Suspect]
     Indication: BREAST CANCER
     Route: 042
     Dates: start: 20090101
  3. RADIOTHERAPY [Concomitant]
     Indication: BREAST CANCER
     Route: 065
     Dates: start: 20090501
  4. CAPECITABINE [Concomitant]
     Indication: BREAST CANCER
     Dosage: 2000MGM2 PER DAY
     Route: 065
     Dates: start: 20110801
  5. TRASTUZUMAB [Concomitant]
     Indication: BREAST CANCER
     Route: 065
     Dates: start: 20090101, end: 20110601

REACTIONS (11)
  - SKIN TOXICITY [None]
  - ERYTHEMA [None]
  - RASH PAPULAR [None]
  - BLISTER [None]
  - PRURITUS [None]
  - PAIN OF SKIN [None]
  - HYPERSENSITIVITY [None]
  - ALOPECIA [None]
  - DERMATITIS EXFOLIATIVE [None]
  - SKIN EXFOLIATION [None]
  - PYREXIA [None]
